FAERS Safety Report 6172007-8 (Version None)
Quarter: 2009Q2

REPORT INFORMATION
  Report Type: 
  Country: None (occurrence: None)
  Receive Date: 20090429
  Receipt Date: 20090421
  Transmission Date: 20091009
  Serious: Yes (Hospitalization)
  Sender: FDA-Public Use
  Company Number: US-ELI_LILLY_AND_COMPANY-US200904004782

PATIENT
  Sex: Female

DRUGS (17)
  1. BYETTA [Suspect]
     Indication: TYPE 2 DIABETES MELLITUS
     Dosage: 5 UG, 2/D
     Route: 058
     Dates: start: 20070501, end: 20070101
  2. BYETTA [Suspect]
     Dosage: 10 UG, 2/D
     Route: 058
     Dates: start: 20070101
  3. BYETTA [Suspect]
     Dosage: 5 UG, 2/D
     Route: 058
     Dates: end: 20080201
  4. BYETTA [Suspect]
     Dosage: 5 UG, 2/D
     Route: 058
     Dates: start: 20080415
  5. METFORMIN HCL [Concomitant]
     Indication: TYPE 2 DIABETES MELLITUS
     Dosage: 1000 MG, 2/D
     Route: 048
     Dates: end: 20080101
  6. METFORMIN HCL [Concomitant]
     Dosage: 500 MG, 2/D
     Route: 048
     Dates: start: 20080101
  7. GLYBURIDE [Concomitant]
     Indication: TYPE 2 DIABETES MELLITUS
     Dosage: 5 MG, UNKNOWN
     Route: 048
     Dates: end: 20080101
  8. GLYBURIDE [Concomitant]
     Dosage: 2.5 MG, UNKNOWN
     Route: 048
     Dates: start: 20080101
  9. AVALIDE [Concomitant]
     Indication: BLOOD PRESSURE INCREASED
     Dosage: UNK, DAILY (1/D)
     Route: 048
  10. CARDIZEM [Concomitant]
     Indication: BLOOD PRESSURE INCREASED
     Dosage: 360 MG, DAILY (1/D)
     Route: 048
  11. VERAPAMIL [Concomitant]
     Indication: BLOOD PRESSURE INCREASED
     Dosage: 40 MG, 2/D
     Route: 048
  12. LIPITOR [Concomitant]
     Indication: BLOOD CHOLESTEROL INCREASED
     Dosage: 40 MG, UNKNOWN
     Route: 048
  13. PREMARIN [Concomitant]
     Indication: HYSTERECTOMY
     Dosage: 0.3 MG, QOD
     Route: 048
     Dates: start: 19740101
  14. ASPIRIN [Concomitant]
     Dosage: UNK, DAILY (1/D)
     Route: 048
  15. CALCIUM [Concomitant]
     Dosage: 600 MG, DAILY (1/D)
     Route: 048
  16. MULTI-VITAMIN [Concomitant]
     Dosage: UNK, DAILY (1/D)
     Route: 048
  17. FISH OIL [Concomitant]
     Dosage: UNK, DAILY (1/D)
     Route: 048

REACTIONS (8)
  - ABDOMINAL PAIN UPPER [None]
  - BLOOD GLUCOSE DECREASED [None]
  - DIARRHOEA [None]
  - DRUG INEFFECTIVE [None]
  - GALLBLADDER DISORDER [None]
  - INCREASED APPETITE [None]
  - VOMITING [None]
  - WHITE BLOOD CELL COUNT INCREASED [None]
